FAERS Safety Report 17661877 (Version 1)
Quarter: 2020Q2

REPORT INFORMATION
  Report Type: Spontaneous
  Country: US (occurrence: US)
  Receive Date: 20200413
  Receipt Date: 20200413
  Transmission Date: 20200713
  Serious: No
  Sender: FDA-Public Use
  Company Number: US-BAYER-2020-056691

PATIENT
  Age: 54 Year
  Sex: Female

DRUGS (2)
  1. OXYCODONE [Concomitant]
     Active Substance: OXYCODONE
     Indication: INTERVERTEBRAL DISC PROTRUSION
     Dosage: 30 MG
     Dates: start: 200012
  2. CIPRO [Suspect]
     Active Substance: CIPROFLOXACIN HYDROCHLORIDE
     Dosage: UNK
     Dates: start: 201802

REACTIONS (1)
  - Swelling face [Recovered/Resolved]
